FAERS Safety Report 11313133 (Version 1)
Quarter: 2015Q3

REPORT INFORMATION
  Report Type: Spontaneous
  Country: US (occurrence: US)
  Receive Date: 20150727
  Receipt Date: 20150727
  Transmission Date: 20151125
  Serious: No
  Sender: FDA-Public Use
  Company Number: US-ABBVIE-15P-163-1361628-00

PATIENT
  Age: 83 Year
  Sex: Female

DRUGS (2)
  1. SYNTHROID [Suspect]
     Active Substance: LEVOTHYROXINE SODIUM
     Indication: PRODUCT USED FOR UNKNOWN INDICATION
     Dosage: OVER 20 YRS.
     Route: 065
  2. TIROSINT [Suspect]
     Active Substance: LEVOTHYROXINE SODIUM
     Indication: HYPOTHYROIDISM
     Route: 048
     Dates: start: 20150125

REACTIONS (7)
  - Bradycardia [Unknown]
  - Heart rate decreased [Unknown]
  - Cardiac disorder [Unknown]
  - Heart rate decreased [Unknown]
  - Heart rate irregular [Unknown]
  - Dyspnoea [Unknown]
  - Electrocardiogram ST segment abnormal [Unknown]

NARRATIVE: CASE EVENT DATE: 2014
